FAERS Safety Report 14091690 (Version 1)
Quarter: 2017Q4

REPORT INFORMATION
  Report Type: Spontaneous
  Country: US (occurrence: US)
  Receive Date: 20171013
  Receipt Date: 20171013
  Transmission Date: 20180321
  Serious: Yes (Hospitalization)
  Sender: FDA-Public Use
  Company Number: None

PATIENT
  Age: 63 Year
  Sex: Female
  Weight: 77.85 kg

DRUGS (7)
  1. STATIN [Concomitant]
     Active Substance: UNSPECIFIED INGREDIENT
  2. PLAVIX [Concomitant]
     Active Substance: CLOPIDOGREL BISULFATE
  3. BACTRIM [Suspect]
     Active Substance: SULFAMETHOXAZOLE\TRIMETHOPRIM
     Indication: POST PROCEDURAL INFECTION
     Dosage: ?          QUANTITY:2 TABLET(S);?
     Route: 048
     Dates: end: 20170921
  4. FISH OIL [Concomitant]
     Active Substance: FISH OIL
  5. LOSARTIN [Concomitant]
     Active Substance: LOSARTAN
  6. CALCIUM [Concomitant]
     Active Substance: CALCIUM
  7. BACTRIM [Suspect]
     Active Substance: SULFAMETHOXAZOLE\TRIMETHOPRIM
     Indication: PROPHYLAXIS
     Dosage: ?          QUANTITY:2 TABLET(S);?
     Route: 048
     Dates: end: 20170921

REACTIONS (2)
  - Urticaria [None]
  - Swelling face [None]

NARRATIVE: CASE EVENT DATE: 20170930
